FAERS Safety Report 10377857 (Version 1)
Quarter: 2014Q3

REPORT INFORMATION
  Report Type: Report from Study
  Country: MX (occurrence: MX)
  Receive Date: 20140812
  Receipt Date: 20140812
  Transmission Date: 20150326
  Serious: Yes (Other)
  Sender: FDA-Public Use
  Company Number: PHHY2014MX099078

PATIENT
  Age: 64 Year
  Sex: Male

DRUGS (1)
  1. EXFORGE HCT [Suspect]
     Active Substance: AMLODIPINE BESYLATE\HYDROCHLOROTHIAZIDE\VALSARTAN
     Indication: HYPERTENSION
     Dosage: 0.5 DF (160/5/12.5 MG), DAILY
     Route: 048
     Dates: start: 201312

REACTIONS (5)
  - Lung disorder [Not Recovered/Not Resolved]
  - Hiatus hernia [Unknown]
  - Concomitant disease progression [Unknown]
  - Wrong technique in drug usage process [Not Recovered/Not Resolved]
  - Cerebral infarction [Recovered/Resolved]

NARRATIVE: CASE EVENT DATE: 201312
